FAERS Safety Report 7080266-2 (Version None)
Quarter: 2010Q4

REPORT INFORMATION
  Report Type: 
  Country: None (occurrence: None)
  Receive Date: 20101103
  Receipt Date: 20101028
  Transmission Date: 20110411
  Serious: No
  Sender: FDA-Public Use
  Company Number: US-BIOGENIDEC-2010BI037468

PATIENT
  Age: 43 Year
  Sex: Female

DRUGS (5)
  1. AVONEX [Suspect]
     Indication: MULTIPLE SCLEROSIS
     Route: 030
     Dates: start: 19990101, end: 20050101
  2. AVONEX [Suspect]
     Route: 030
     Dates: start: 20101001
  3. NUVIGIL [Concomitant]
     Indication: FATIGUE
  4. KLONOPIN [Concomitant]
     Indication: TREMOR
  5. STEROIDS (NOS) [Concomitant]
     Indication: MULTIPLE SCLEROSIS RELAPSE
     Route: 048

REACTIONS (5)
  - INFLUENZA LIKE ILLNESS [None]
  - INJECTION SITE PAIN [None]
  - MICTURITION URGENCY [None]
  - QUADRIPARESIS [None]
  - URINARY INCONTINENCE [None]
